FAERS Safety Report 23964579 (Version 1)
Quarter: 2024Q2

REPORT INFORMATION
  Report Type: Report from Study
  Country: US (occurrence: US)
  Receive Date: 20240612
  Receipt Date: 20240612
  Transmission Date: 20240716
  Serious: Yes (Other)
  Sender: FDA-Public Use
  Company Number: US-ABBVIE-5657272

PATIENT
  Age: 68 Year
  Sex: Female
  Weight: 97 kg

DRUGS (8)
  1. SKYRIZI [Suspect]
     Active Substance: RISANKIZUMAB-RZAA
     Indication: Psoriasis
     Dosage: LAST ADMIN DATE JUL 2020
     Route: 058
     Dates: start: 20200706
  2. SKYRIZI [Suspect]
     Active Substance: RISANKIZUMAB-RZAA
     Dosage: FREQUENCY TEXT: 84 DAYS
     Route: 058
     Dates: start: 20200727, end: 202404
  3. SKYRIZI [Suspect]
     Active Substance: RISANKIZUMAB-RZAA
     Dosage: FREQUENCY TEXT: 84 DAYS
     Route: 058
     Dates: start: 2024
  4. BACTRIM [Suspect]
     Active Substance: SULFAMETHOXAZOLE\TRIMETHOPRIM
     Indication: Product used for unknown indication
     Route: 065
  5. ALBUTEROL [Concomitant]
     Active Substance: ALBUTEROL
     Indication: Product used for unknown indication
     Dates: start: 20240114, end: 20240429
  6. LEVOTHYROXINE [Concomitant]
     Active Substance: LEVOTHYROXINE\LEVOTHYROXINE SODIUM
     Indication: Hypothyroidism
     Dosage: FORM STRENGTH: 75 MICROGRAM
     Route: 048
     Dates: start: 20070415
  7. VITAMIN D NOS [Concomitant]
     Active Substance: CHOLECALCIFEROL\ERGOCALCIFEROL
     Indication: Vitamin D decreased
     Dosage: 4000 IU, DROPS
     Route: 048
  8. CALCIUM\MAGNESIUM [Concomitant]
     Active Substance: CALCIUM\MAGNESIUM
     Indication: Prophylaxis
     Route: 048

REACTIONS (19)
  - Bronchitis [Recovering/Resolving]
  - Nasopharyngitis [Unknown]
  - Adverse drug reaction [Unknown]
  - Episcleritis [Unknown]
  - Sinusitis [Recovered/Resolved]
  - Respiratory tract infection [Unknown]
  - Night sweats [Unknown]
  - Sinus congestion [Unknown]
  - Rash papular [Unknown]
  - Dyspnoea [Unknown]
  - Paranasal sinus hypersecretion [Not Recovered/Not Resolved]
  - Rash pruritic [Unknown]
  - Increased upper airway secretion [Not Recovered/Not Resolved]
  - Skin burning sensation [Unknown]
  - Cough [Unknown]
  - Wheezing [Unknown]
  - Night sweats [Unknown]
  - Pyrexia [Recovered/Resolved]
  - Productive cough [Not Recovered/Not Resolved]

NARRATIVE: CASE EVENT DATE: 20240101
